FAERS Safety Report 8762026 (Version 3)
Quarter: 2012Q4

REPORT INFORMATION
  Report Type: 
  Country: US (occurrence: US)
  Receive Date: 20120828
  Receipt Date: 20121010
  Transmission Date: 20130627
  Serious: Yes (Other)
  Sender: FDA-Public Use
  Company Number: US-PFIZER INC-2012208721

PATIENT
  Age: 68 Year
  Sex: Male
  Weight: 58.96 kg

DRUGS (8)
  1. NEURONTIN [Suspect]
     Indication: BIPOLAR DISORDER
     Dosage: 800 mg, 3x/day
     Route: 048
  2. LORAZEPAM [Concomitant]
     Indication: INSOMNIA
     Dosage: UNK, 1x/day
  3. LEVOXYL [Concomitant]
     Indication: POSTOPERATIVE CARE
     Dosage: 0.1 mg, 1x/day
  4. ECOTRIN [Concomitant]
     Dosage: 325 mg, 1x/day
  5. CENTRUM SILVER [Concomitant]
     Dosage: UNK, 1x/day
  6. OMEPRAZOLE [Concomitant]
     Indication: GASTROOESOPHAGEAL REFLUX DISEASE
     Dosage: UNK, 1x/day
  7. DOCUSATE [Concomitant]
     Dosage: UNK
  8. SIMVASTATIN [Concomitant]
     Indication: PROPHYLAXIS
     Dosage: UNK

REACTIONS (3)
  - Prostatomegaly [Recovering/Resolving]
  - Hernia [Recovering/Resolving]
  - Off label use [Unknown]
